FAERS Safety Report 5358335-4 (Version None)
Quarter: 2007Q2

REPORT INFORMATION
  Report Type: 
  Country: None (occurrence: None)
  Receive Date: 20070530
  Receipt Date: 20061004
  Transmission Date: 20071010
  Serious: No
  Sender: FDA-Public Use
  Company Number: US200602002069

PATIENT
  Age: 30 Year
  Sex: Male
  Weight: 93 kg

DRUGS (12)
  1. ZYPREXA [Suspect]
     Indication: SCHIZOPHRENIA
     Dosage: SE IMAGE
     Route: 048
     Dates: start: 19961101
  2. ZYPREXA [Suspect]
     Indication: SCHIZOPHRENIA
     Dosage: SE IMAGE
     Route: 048
     Dates: start: 20020822
  3. ZYPREXA [Suspect]
     Indication: SCHIZOPHRENIA
     Dosage: SE IMAGE
     Route: 048
     Dates: start: 20050413
  4. FLUVOXAMINE MALEATE [Concomitant]
  5. DEPAKOTE [Concomitant]
  6. LOPRAMIDE (LOPRAMIDE) [Concomitant]
  7. METRONIDAZOLE [Concomitant]
  8. AZATHIOPRINE [Concomitant]
  9. ENTOCORT EC [Concomitant]
  10. ABILIFY [Concomitant]
  11. RISPERDAL  /SWE/ (RISPERIDONE) [Concomitant]
  12. AMBIEN [Concomitant]

REACTIONS (3)
  - DIABETES MELLITUS NON-INSULIN-DEPENDENT [None]
  - PRESCRIBED OVERDOSE [None]
  - WEIGHT INCREASED [None]
